FAERS Safety Report 5730029-2 (Version None)
Quarter: 2008Q2

REPORT INFORMATION
  Report Type: 
  Country: None (occurrence: None)
  Receive Date: 20080505
  Receipt Date: 20080505
  Transmission Date: 20081010
  Serious: Yes (Life-Threatening, Hospitalization)
  Sender: FDA-Public Use
  Company Number: None

PATIENT
  Age: 74 Year
  Sex: Female
  Weight: 53.0709 kg

DRUGS (2)
  1. SEROQUEL [Suspect]
     Indication: INSOMNIA
     Dosage: 200 MG  ONCE PER DAY  PO
     Route: 048
     Dates: start: 20080415, end: 20080420
  2. SEROQUEL [Suspect]
     Indication: OBSESSIVE-COMPULSIVE DISORDER
     Dosage: 200 MG  ONCE PER DAY  PO
     Route: 048
     Dates: start: 20080415, end: 20080420

REACTIONS (9)
  - BLOOD PRESSURE DECREASED [None]
  - BRAIN INJURY [None]
  - CEREBRAL HAEMORRHAGE [None]
  - COMA [None]
  - HEAD INJURY [None]
  - HEART RATE ABNORMAL [None]
  - LOSS OF CONSCIOUSNESS [None]
  - MEDICATION ERROR [None]
  - PAIN [None]
